FAERS Safety Report 8390022-0 (Version None)
Quarter: 2012Q2

REPORT INFORMATION
  Report Type: 
  Country: None (occurrence: None)
  Receive Date: 20120529
  Receipt Date: 20120522
  Transmission Date: 20120825
  Serious: No
  Sender: FDA-Public Use
  Company Number: US-PFIZER INC-2012025695

PATIENT
  Sex: Female
  Weight: 63.4 kg

DRUGS (3)
  1. LORATADINE AND PSEUDOEPHEDRINE SULFATE [Suspect]
     Indication: EAR PAIN
     Dosage: UNK 2X/DAY
     Route: 048
  2. FIORICET [Concomitant]
     Indication: MIGRAINE
     Dosage: UNK, 4X/DAY
  3. KLONOPIN [Concomitant]
     Dosage: UNK

REACTIONS (3)
  - FUNGAL INFECTION [None]
  - DRUG INEFFECTIVE [None]
  - CYSTITIS [None]
